FAERS Safety Report 8428579-3 (Version None)
Quarter: 2012Q2

REPORT INFORMATION
  Report Type: 
  Country: None (occurrence: None)
  Receive Date: 20120606
  Receipt Date: 20120606
  Transmission Date: 20120825
  Serious: Yes (Other)
  Sender: FDA-Public Use
  Company Number: None

PATIENT
  Age: 58 Year
  Sex: Male
  Weight: 77.1115 kg

DRUGS (1)
  1. AMLODIPINE BESYLATE [Suspect]
     Dosage: 10 DAILY PO
     Route: 048

REACTIONS (3)
  - CHOKING [None]
  - THROAT IRRITATION [None]
  - PRODUCT FRIABLE [None]
